FAERS Safety Report 12099545 (Version 1)
Quarter: 2016Q1

REPORT INFORMATION
  Report Type: Spontaneous
  Country: GB (occurrence: GB)
  Receive Date: 20160222
  Receipt Date: 20160222
  Transmission Date: 20160526
  Serious: Yes (Other)
  Sender: FDA-Public Use
  Company Number: GB-JNJFOC-20160211954

PATIENT
  Age: 7 Month
  Sex: Female

DRUGS (2)
  1. CALPOL [Suspect]
     Active Substance: ACETAMINOPHEN
     Indication: INFLUENZA
     Route: 065
  2. CALPOL [Suspect]
     Active Substance: ACETAMINOPHEN
     Indication: TEETHING
     Route: 065

REACTIONS (8)
  - Pyrexia [Unknown]
  - Teething [None]
  - Crying [Unknown]
  - Rash erythematous [Unknown]
  - Skin discolouration [Unknown]
  - Hypersensitivity [Unknown]
  - Influenza [None]
  - Adverse drug reaction [None]
